FAERS Safety Report 4705228-9 (Version None)
Quarter: 2005Q2

REPORT INFORMATION
  Report Type: 
  Country: None (occurrence: None)
  Receive Date: 20050208
  Receipt Date: 20050208
  Transmission Date: 20051028
  Serious: No
  Sender: FDA-Public Use
  Company Number: None

PATIENT
  Sex: Male
  Weight: 81.6475 kg

DRUGS (1)
  1. GENGRAF [Suspect]
     Indication: IMMUNOSUPPRESSION
     Dosage: 100-150 BID PO
     Route: 048
     Dates: start: 20030311, end: 20031001

REACTIONS (1)
  - DRUG LEVEL CHANGED [None]
